FAERS Safety Report 16147695 (Version 1)
Quarter: 2019Q2

REPORT INFORMATION
  Report Type: Spontaneous
  Country: US (occurrence: US)
  Receive Date: 20190402
  Receipt Date: 20190402
  Transmission Date: 20190711
  Serious: No
  Sender: FDA-Public Use
  Company Number: US-ALLERGAN-1842246US

PATIENT
  Age: 43 Year
  Sex: Female

DRUGS (1)
  1. LILETTA [Suspect]
     Active Substance: LEVONORGESTREL
     Indication: PRODUCT USED FOR UNKNOWN INDICATION
     Dosage: 52 MG, SINGLE
     Route: 015
     Dates: start: 20180616, end: 20180823

REACTIONS (6)
  - Hypoaesthesia [Unknown]
  - Device expulsion [Unknown]
  - Breast tenderness [Unknown]
  - Anger [Unknown]
  - Lacrimation increased [Unknown]
  - Headache [Unknown]

NARRATIVE: CASE EVENT DATE: 20180823
